FAERS Safety Report 9256954 (Version 1)
Quarter: 2013Q2

REPORT INFORMATION
  Report Type: Spontaneous
  Country: US (occurrence: None)
  Receive Date: 20130423
  Receipt Date: 20130423
  Transmission Date: 20140414
  Serious: Yes (Other)
  Sender: FDA-Public Use
  Company Number: JPI-P-031287

PATIENT
  Age: 40 Year
  Sex: Female
  Weight: 81.65 kg

DRUGS (7)
  1. XYREM [Suspect]
     Indication: INSOMNIA
     Route: 048
     Dates: start: 20120731, end: 20130315
  2. CELECOXIB [Concomitant]
  3. DULOXETINE HYDROCHLORIDE [Concomitant]
  4. TAMSULOSIN HYDROCHLORIDE [Concomitant]
  5. RANITIDINE HYDROCHLORIDE [Concomitant]
  6. PROPRANOLOL HYDROCHLORIDE [Concomitant]
  7. QUETIAPINE FUMARATE [Concomitant]

REACTIONS (5)
  - Confusional state [None]
  - Aspiration [None]
  - Catatonia [None]
  - Convulsion [None]
  - Aphasia [None]
